FAERS Safety Report 5995124-1 (Version None)
Quarter: 2008Q4

REPORT INFORMATION
  Report Type: 
  Country: None (occurrence: None)
  Receive Date: 20081212
  Receipt Date: 20081204
  Transmission Date: 20090506
  Serious: Yes (Other)
  Sender: FDA-Public Use
  Company Number: PHBS2008US06630

PATIENT
  Age: 42 Year
  Sex: Female

DRUGS (4)
  1. BACLOFEN [Suspect]
     Indication: MUSCLE SPASTICITY
     Dosage: 650 TO 400 UG PER DAY
     Route: 037
  2. BACLOFEN [Suspect]
     Dosage: 583 TO 494 UG PER DAY
     Route: 037
  3. BACLOFEN [Concomitant]
     Dosage: 10-20 MG PER DAY
     Route: 048
  4. BOTOX [Concomitant]
     Indication: MUSCLE SPASTICITY

REACTIONS (12)
  - BURNING SENSATION [None]
  - DEPENDENCE ON ENABLING MACHINE OR DEVICE [None]
  - FATIGUE [None]
  - HYPERTONIA [None]
  - HYPOTONIA [None]
  - MOBILITY DECREASED [None]
  - NAUSEA [None]
  - OVERDOSE [None]
  - PAIN [None]
  - PRURITUS [None]
  - URINARY INCONTINENCE [None]
  - WITHDRAWAL SYNDROME [None]
